FAERS Safety Report 9842822 (Version 1)
Quarter: 2013Q4

REPORT INFORMATION
  Report Type: Spontaneous
  Country: US (occurrence: None)
  Receive Date: 20131219
  Receipt Date: 20131219
  Transmission Date: 20140711
  Serious: Yes (Hospitalization)
  Sender: FDA-Public Use
  Company Number: 163-20785-13100424

PATIENT
  Age: 59 Year
  Sex: Female

DRUGS (10)
  1. THALOMID (THALIDOMIDE) (CAPSULES) [Suspect]
     Indication: PLASMA CELL MYELOMA
     Dosage: 200 MG, 1 IN 1 D, PO
     Route: 048
     Dates: start: 20130531
  2. THALOMID (THALIDOMIDE) (CAPSULES) [Suspect]
     Indication: PLASMA CELL MYELOMA
     Dosage: 200 MG, 1 IN 1 D, PO
     Route: 048
     Dates: start: 20130531
  3. DEXAMETHASONE (DEXAMETHASONE) [Concomitant]
  4. LOVENOX (HEPARIN-FRACTION, SODIUM SALT) [Concomitant]
  5. CISPLATIN (CISPLATIN) [Concomitant]
  6. CYCLOPHOSPHAMIDE 9CYCLOPHOSPHAMIDE) [Concomitant]
  7. LEVAQUIN 9LEVOFLOXACIN) [Concomitant]
  8. ADRIAMYCIN (DOXORUBICIN) [Concomitant]
  9. ETOPOSIDE (ETOPOSIDE) [Concomitant]
  10. VELCADE (BORTEZOMIB) [Concomitant]

REACTIONS (1)
  - Viral infection [None]
